FAERS Safety Report 21934163 (Version 5)
Quarter: 2023Q2

REPORT INFORMATION
  Report Type: Spontaneous
  Country: CA (occurrence: CA)
  Receive Date: 20230201
  Receipt Date: 20230602
  Transmission Date: 20230722
  Serious: Yes (Other)
  Sender: FDA-Public Use
  Company Number: CA-CELLTRION INC.-2023CA002153

PATIENT

DRUGS (6)
  1. INFLECTRA [Suspect]
     Active Substance: INFLIXIMAB-DYYB
     Indication: Crohn^s disease
     Dosage: 5 MG/KG INDUCTION, MAINTENANCE AT Q8 WEEKS
     Route: 042
     Dates: start: 20221201
  2. INFLECTRA [Suspect]
     Active Substance: INFLIXIMAB-DYYB
     Dosage: 5 MG/KG INDUCTION, MAINTENANCE AT Q8 WEEKS
     Route: 042
     Dates: start: 20221215
  3. INFLECTRA [Suspect]
     Active Substance: INFLIXIMAB-DYYB
     Dosage: 275 MG , 5 MG/KG , 5 WEEKS AND 4 DAYS (SUPPOSED TO RECEIVE 4 WEEKS AFTER THE PREVIOUS ONE)
     Route: 042
     Dates: start: 20230123
  4. INFLECTRA [Suspect]
     Active Substance: INFLIXIMAB-DYYB
     Dosage: 265 MG, EVERY 9 WEEKS (5 MG/KG INDUCTION, MAINTENANCE AT Q8 WEEKS)
     Route: 042
     Dates: start: 20230330
  5. INFLECTRA [Suspect]
     Active Substance: INFLIXIMAB-DYYB
     Dosage: 5MG/KG EVERY 8 WEEKS
     Route: 042
     Dates: start: 20230525
  6. PREDNISONE [Concomitant]
     Active Substance: PREDNISONE
     Dosage: UNK

REACTIONS (13)
  - Pain in extremity [Recovered/Resolved]
  - Off label use [Unknown]
  - Inappropriate schedule of product administration [Unknown]
  - Dyspnoea [Recovered/Resolved]
  - Fatigue [Recovered/Resolved]
  - Exercise tolerance decreased [Recovered/Resolved]
  - Diarrhoea [Recovered/Resolved]
  - Pyrexia [Recovered/Resolved]
  - Chills [Recovered/Resolved]
  - Sleep disorder [Recovered/Resolved]
  - Chills [Recovered/Resolved]
  - Fistula [Not Recovered/Not Resolved]
  - Headache [Not Recovered/Not Resolved]

NARRATIVE: CASE EVENT DATE: 20221201
